FAERS Safety Report 7749642-6 (Version None)
Quarter: 2011Q3

REPORT INFORMATION
  Report Type: 
  Country: None (occurrence: None)
  Receive Date: 20110914
  Receipt Date: 20110905
  Transmission Date: 20111222
  Serious: Yes (Death)
  Sender: FDA-Public Use
  Company Number: FR-SANOFI-AVENTIS-2011SA057563

PATIENT
  Age: 48 Year
  Sex: Male

DRUGS (7)
  1. CISPLATIN [Suspect]
     Route: 041
     Dates: start: 20110714, end: 20110804
  2. ESOMEPRAZOLE SODIUM [Concomitant]
     Route: 065
  3. VITAMIN B1 AND B6 [Concomitant]
     Route: 065
  4. MOVIPREP [Concomitant]
     Route: 065
  5. ACETAMINOPHEN [Concomitant]
     Route: 065
  6. TAXOTERE [Suspect]
     Route: 041
     Dates: start: 20110714, end: 20110714
  7. OXAZEPAM [Concomitant]
     Route: 065

REACTIONS (1)
  - DIARRHOEA [None]
